FAERS Safety Report 14032728 (Version 4)
Quarter: 2018Q2

REPORT INFORMATION
  Report Type: Spontaneous
  Country: NL (occurrence: NL)
  Receive Date: 20171002
  Receipt Date: 20180521
  Transmission Date: 20180711
  Serious: Yes (Death, Hospitalization, Other)
  Sender: FDA-Public Use
  Company Number: NL-BAUSCH-BL-2017-028048

PATIENT
  Age: 77 Year
  Sex: Female

DRUGS (4)
  1. POLYETHYLENE GLYCOL [Suspect]
     Active Substance: POLYETHYLENE GLYCOLS
     Indication: PRODUCT USED FOR UNKNOWN INDICATION
     Dosage: 4L (2 PLUS 2) WITHIN 48 HOURS
     Route: 065
  2. MOVIPREP [Suspect]
     Active Substance: ASCORBIC ACID\POLYETHYLENE GLYCOL 3350\POTASSIUM CHLORIDE\SODIUM ASCORBATE\SODIUM CHLORIDE\SODIUM SULFATE
     Indication: BOWEL PREPARATION
     Dosage: 2L PLUS 2L
     Route: 065
  3. DIGOXIN. [Suspect]
     Active Substance: DIGOXIN
     Indication: PRODUCT USED FOR UNKNOWN INDICATION
     Route: 065
  4. MACROGOL [Suspect]
     Active Substance: POLYETHYLENE GLYCOLS
     Indication: PRODUCT USED FOR UNKNOWN INDICATION
     Dosage: 2L PLUS 2L, WITHIN 48 HOURS
     Route: 065

REACTIONS (6)
  - Metabolic acidosis [Fatal]
  - Circulatory collapse [Fatal]
  - Loss of consciousness [Fatal]
  - Hypokalaemia [Fatal]
  - Incorrect dose administered [Fatal]
  - Therapeutic response decreased [Fatal]
